FAERS Safety Report 7065421 (Version 5)
Quarter: 2012Q4

REPORT INFORMATION
  Report Type: 
  Country: CA (occurrence: CA)
  Receive Date: 20090728
  Receipt Date: 20120924
  Transmission Date: 20130627
  Serious: Yes (Other)
  Sender: FDA-Public Use
  Company Number: PHHY2009CA29629

PATIENT
  Sex: Male

DRUGS (2)
  1. SANDOSTATIN [Suspect]
     Dosage: UNK UKN, TID
     Dates: start: 200906
  2. SANDOSTATIN LAR [Suspect]
     Indication: NEUROENDOCRINE TUMOUR
     Dosage: 30 mg every 4 weeks
     Route: 030
     Dates: start: 20090707, end: 20120829

REACTIONS (7)
  - Lip swelling [Unknown]
  - Chest pain [Unknown]
  - Dyspnoea [Unknown]
  - Rash pruritic [Recovered/Resolved]
  - Fatigue [Unknown]
  - Oedema peripheral [Unknown]
  - Nausea [Unknown]
